FAERS Safety Report 17383696 (Version 1)
Quarter: 2020Q1

REPORT INFORMATION
  Report Type: Spontaneous
  Country: US (occurrence: US)
  Receive Date: 20200206
  Receipt Date: 20200206
  Transmission Date: 20200409
  Serious: No
  Sender: FDA-Public Use
  Company Number: US-ABBVIE-19K-163-2857605-00

PATIENT
  Sex: Female

DRUGS (3)
  1. AMLODIPINE [Concomitant]
     Active Substance: AMLODIPINE BESYLATE
     Indication: BLOOD PRESSURE MEASUREMENT
     Route: 065
  2. HUMIRA [Suspect]
     Active Substance: ADALIMUMAB
     Indication: MIXED CONNECTIVE TISSUE DISEASE
     Route: 058
     Dates: start: 201901, end: 2019
  3. HUMIRA [Suspect]
     Active Substance: ADALIMUMAB
     Route: 058
     Dates: start: 201903

REACTIONS (6)
  - Off label use [Unknown]
  - Malaise [Recovering/Resolving]
  - Fatigue [Recovering/Resolving]
  - Pain [Recovering/Resolving]
  - Crohn^s disease [Unknown]
  - Device issue [Recovered/Resolved]

NARRATIVE: CASE EVENT DATE: 2019
